FAERS Safety Report 25837057 (Version 2)
Quarter: 2025Q4

REPORT INFORMATION
  Report Type: Spontaneous
  Country: EG (occurrence: EG)
  Receive Date: 20250923
  Receipt Date: 20251001
  Transmission Date: 20260117
  Serious: Yes (Other)
  Sender: NOVO NORDISK
  Company Number: EG-NOVOPROD-1525823

PATIENT
  Sex: Female
  Weight: 115 kg

DRUGS (1)
  1. TRESIBA [Suspect]
     Active Substance: INSULIN DEGLUDEC
     Indication: Diabetes mellitus
     Dosage: 18 IU, QD
     Route: 058

REACTIONS (4)
  - Cataract [Not Recovered/Not Resolved]
  - Eye haemorrhage [Unknown]
  - Nervousness [Unknown]
  - Wrong technique in product usage process [Unknown]
